FAERS Safety Report 5351296-3 (Version None)
Quarter: 2007Q2

REPORT INFORMATION
  Report Type: 
  Country: None (occurrence: None)
  Receive Date: 20070608
  Receipt Date: 20070531
  Transmission Date: 20071010
  Serious: Yes (Hospitalization)
  Sender: FDA-Public Use
  Company Number: US-AMGEN-US222972

PATIENT
  Age: 83 Year
  Sex: Female
  Weight: 40 kg

DRUGS (3)
  1. ARANESP [Suspect]
     Indication: DRUG USE FOR UNKNOWN INDICATION
     Route: 058
     Dates: start: 20061109, end: 20070210
  2. EXJADE [Concomitant]
     Dates: start: 20060109
  3. FUROSEMIDE [Concomitant]

REACTIONS (2)
  - DRUG INEFFECTIVE [None]
  - ISCHAEMIC STROKE [None]
